FAERS Safety Report 5826067-1 (Version None)
Quarter: 2008Q3

REPORT INFORMATION
  Report Type: 
  Country: None (occurrence: None)
  Receive Date: 20080723
  Receipt Date: 20080714
  Transmission Date: 20090109
  Serious: Yes (Other)
  Sender: FDA-Public Use
  Company Number: GXBR2008US01480

PATIENT
  Age: 52 Year
  Sex: Female

DRUGS (5)
  1. METFORMIN HCL [Suspect]
     Indication: DIABETES MELLITUS
     Dosage: ORAL
     Route: 048
     Dates: start: 20080601, end: 20080601
  2. ACEON [Suspect]
     Indication: ESSENTIAL HYPERTENSION
     Dosage: 4 MG, QD, ORAL
     Route: 048
     Dates: start: 20080601, end: 20080601
  3. LIPITOR /NET/ (ATORVASTATIN CALCIUM) [Concomitant]
  4. OMEGA 3 FISH OIL (FISH OIL) [Concomitant]
  5. MULTIVITAMINS, PLAIN (NO INGREDIENTS/SUBSTANCES) [Concomitant]

REACTIONS (1)
  - PANCREATIC CARCINOMA [None]
